FAERS Safety Report 10559540 (Version 1)
Quarter: 2014Q4

REPORT INFORMATION
  Report Type: Spontaneous
  Country: US (occurrence: US)
  Receive Date: 20141103
  Receipt Date: 20141103
  Transmission Date: 20150529
  Serious: No
  Sender: FDA-Public Use
  Company Number: US-PFIZER INC-2014299328

PATIENT
  Age: 58 Year
  Sex: Male

DRUGS (1)
  1. INLYTA [Suspect]
     Active Substance: AXITINIB
     Indication: COLON CANCER
     Dosage: 3 MG, 2X/DAY (1MG TABLET, 3 TABLETS TWICE DAILY)
     Route: 048

REACTIONS (3)
  - Dysphonia [Unknown]
  - Hypertension [Unknown]
  - Diarrhoea [Unknown]
